FAERS Safety Report 9691897 (Version 2)
Quarter: 2013Q4

REPORT INFORMATION
  Report Type: Spontaneous
  Country: GB (occurrence: GB)
  Receive Date: 20131117
  Receipt Date: 20131127
  Transmission Date: 20140711
  Serious: Yes (Life-Threatening, Hospitalization, Other)
  Sender: FDA-Public Use
  Company Number: GB-009507513-1311GBR004059

PATIENT
  Sex: Female

DRUGS (4)
  1. NEXPLANON [Suspect]
     Indication: CONTRACEPTION
     Dosage: 3 UNK, UNK
     Dates: start: 2010
  2. NEXPLANON [Suspect]
     Dosage: 1 UNK, UNK
     Route: 058
     Dates: start: 20041006, end: 2007
  3. NEXPLANON [Suspect]
     Dosage: 2 UNK, UNK
     Dates: start: 2007, end: 2010
  4. WARFARIN [Concomitant]

REACTIONS (2)
  - Colostomy [Unknown]
  - Pulmonary embolism [Unknown]
